FAERS Safety Report 22314749 (Version 1)
Quarter: 2023Q2

REPORT INFORMATION
  Report Type: Spontaneous
  Country: IT (occurrence: IT)
  Receive Date: 20230512
  Receipt Date: 20230512
  Transmission Date: 20230722
  Serious: Yes (Hospitalization, Other)
  Sender: FDA-Public Use
  Company Number: None

PATIENT
  Age: 46 Year
  Sex: Female

DRUGS (3)
  1. IBUPROFEN [Suspect]
     Active Substance: IBUPROFEN
     Indication: Product used for unknown indication
     Dosage: 6 DOSAGE FORM
     Route: 048
     Dates: start: 20230412, end: 20230412
  2. TACHIPIRINA [Suspect]
     Active Substance: ACETAMINOPHEN
     Indication: Product used for unknown indication
     Dosage: 3 GRAM
     Route: 048
     Dates: start: 20230412, end: 20230412
  3. AUGMENTIN [Suspect]
     Active Substance: AMOXICILLIN\CLAVULANATE POTASSIUM
     Indication: Product used for unknown indication
     Dosage: 6 DOSAGE FORM
     Route: 048
     Dates: start: 20230412, end: 20230412

REACTIONS (3)
  - Vomiting [Recovering/Resolving]
  - Drug abuse [Unknown]
  - Intentional overdose [Recovering/Resolving]

NARRATIVE: CASE EVENT DATE: 20230412
